FAERS Safety Report 7998898-3 (Version None)
Quarter: 2011Q4

REPORT INFORMATION
  Report Type: 
  Country: None (occurrence: None)
  Receive Date: 20111221
  Receipt Date: 20110408
  Transmission Date: 20120403
  Serious: Yes (Life-Threatening)
  Sender: FDA-Public Use
  Company Number: JP-GLAXOSMITHKLINE-B0712276A

PATIENT
  Sex: Male

DRUGS (4)
  1. MUCODYNE [Concomitant]
     Indication: ASTHMA
     Dosage: 1000MG PER DAY
     Route: 048
  2. SINGULAIR [Concomitant]
     Indication: ASTHMA
     Dosage: 10MG PER DAY
     Route: 048
  3. CHINESE MEDICINE [Concomitant]
     Indication: ASTHMA
     Dosage: 6G PER DAY
     Route: 048
  4. FLUTICASONE PROPIONATE/SALMETEROL [Suspect]
     Indication: ASTHMA
     Dosage: 1000MCG PER DAY
     Route: 055
     Dates: end: 20110318

REACTIONS (5)
  - BLOOD CORTICOTROPHIN DECREASED [None]
  - ACTH STIMULATION TEST ABNORMAL [None]
  - ADRENAL INSUFFICIENCY [None]
  - BLOOD CORTISOL DECREASED [None]
  - PYREXIA [None]
